FAERS Safety Report 4724530-8 (Version None)
Quarter: 2005Q3

REPORT INFORMATION
  Report Type: 
  Country: None (occurrence: None)
  Receive Date: 20050720
  Receipt Date: 20050720
  Transmission Date: 20060218
  Serious: Yes (Disabling)
  Sender: FDA-Public Use
  Company Number: None

PATIENT
  Age: 45 Year
  Sex: Female
  Weight: 68.0396 kg

DRUGS (3)
  1. RISPERDAL [Suspect]
     Indication: MANIA
     Dosage: 4 MG DAILY
     Dates: start: 20031117, end: 20031219
  2. WELLBUTRIN [Concomitant]
  3. BENADRYL [Concomitant]

REACTIONS (18)
  - AGORAPHOBIA [None]
  - ALOPECIA [None]
  - ANXIETY [None]
  - BALANCE DISORDER [None]
  - COORDINATION ABNORMAL [None]
  - DYSPHAGIA [None]
  - FEELING ABNORMAL [None]
  - HEMIPLEGIA [None]
  - INSOMNIA [None]
  - MEMORY IMPAIRMENT [None]
  - MENORRHAGIA [None]
  - NIGHTMARE [None]
  - OVARIAN NEOPLASM [None]
  - PANIC DISORDER [None]
  - SPEECH DISORDER [None]
  - UTERINE NEOPLASM [None]
  - VISUAL ACUITY REDUCED [None]
  - VISUAL DISTURBANCE [None]
